FAERS Safety Report 7525818-8 (Version None)
Quarter: 2011Q2

REPORT INFORMATION
  Report Type: 
  Country: None (occurrence: None)
  Receive Date: 20110606
  Receipt Date: 20110601
  Transmission Date: 20111010
  Serious: Yes (Other)
  Sender: FDA-Public Use
  Company Number: US-GENZYME-FABR-1001958

PATIENT

DRUGS (1)
  1. FABRAZYME [Suspect]
     Indication: FABRY'S DISEASE
     Dosage: 100 MG, Q2W
     Route: 042
     Dates: start: 20060401

REACTIONS (2)
  - FOOT FRACTURE [None]
  - LOCALISED INFECTION [None]
